FAERS Safety Report 5445620-0 (Version None)
Quarter: 2007Q3

REPORT INFORMATION
  Report Type: 
  Country: None (occurrence: None)
  Receive Date: 20070906
  Receipt Date: 20070828
  Transmission Date: 20080115
  Serious: Yes (Other)
  Sender: FDA-Public Use
  Company Number: DE-GILEAD-2007-0012436

PATIENT
  Sex: Male

DRUGS (6)
  1. VIREAD [Suspect]
     Indication: HIV INFECTION
     Route: 048
     Dates: start: 20030805, end: 20070315
  2. REYATAZ [Concomitant]
     Indication: HIV INFECTION
     Route: 048
     Dates: start: 20031009
  3. INVIRASE [Concomitant]
     Indication: HIV INFECTION
     Route: 048
     Dates: start: 20030805
  4. NORVIR [Concomitant]
     Indication: HIV INFECTION
     Route: 048
     Dates: start: 20030805
  5. TRAMADOL HCL [Concomitant]
     Indication: BACK DISORDER
     Route: 048
     Dates: start: 20070201
  6. DIAZEPAM [Concomitant]
     Indication: BACK DISORDER
     Route: 048
     Dates: start: 20050101

REACTIONS (2)
  - HYPOKALAEMIA [None]
  - NEPHROGENIC DIABETES INSIPIDUS [None]
